FAERS Safety Report 6619148-6 (Version None)
Quarter: 2010Q1

REPORT INFORMATION
  Report Type: 
  Country: None (occurrence: None)
  Receive Date: 20100305
  Receipt Date: 20100305
  Transmission Date: 20100710
  Serious: No
  Sender: FDA-Public Use
  Company Number: None

PATIENT
  Age: 34 Year
  Sex: Female
  Weight: 61.6892 kg

DRUGS (1)
  1. METOCLOPRAMIDE [Suspect]
     Indication: IMPAIRED GASTRIC EMPTYING
     Dosage: 1 TABLET 4 TIMES A DAY
     Dates: start: 20100302, end: 20100303

REACTIONS (6)
  - AGITATION [None]
  - DIZZINESS [None]
  - IMPAIRED WORK ABILITY [None]
  - MOVEMENT DISORDER [None]
  - RESTLESSNESS [None]
  - SOMNOLENCE [None]
